FAERS Safety Report 8358733-0 (Version None)
Quarter: 2012Q2

REPORT INFORMATION
  Report Type: 
  Country: None (occurrence: None)
  Receive Date: 20120514
  Receipt Date: 20120503
  Transmission Date: 20120825
  Serious: Yes (Death)
  Sender: FDA-Public Use
  Company Number: GB-BAXTER-2012BAX004580

PATIENT

DRUGS (6)
  1. ASPIRIN [Concomitant]
     Route: 064
  2. CYCLOGEST [Concomitant]
     Route: 064
  3. INTRALIPID 10% [Suspect]
     Route: 064
  4. KIOVIG [Suspect]
     Route: 064
  5. PREDNISOLONE [Concomitant]
     Route: 064
  6. PROGESTERONE [Concomitant]
     Route: 064

REACTIONS (2)
  - FOETAL EXPOSURE DURING PREGNANCY [None]
  - FOETAL DEATH [None]
